FAERS Safety Report 5601477-6 (Version None)
Quarter: 2008Q1

REPORT INFORMATION
  Report Type: 
  Country: None (occurrence: None)
  Receive Date: 20080118
  Receipt Date: 20080110
  Transmission Date: 20080703
  Serious: Yes (Other)
  Sender: FDA-Public Use
  Company Number: 2008PL000003

PATIENT
  Age: 29 Year
  Sex: Male

DRUGS (4)
  1. MERCAPTOPURINE [Suspect]
     Indication: COLITIS ULCERATIVE
     Dosage: PO
     Route: 048
  2. PREDNISONE TAB [Suspect]
     Indication: COLITIS ULCERATIVE
     Dosage: 20 MG; QD; PO
     Route: 048
  3. CYCLOSPORINE [Suspect]
     Indication: COLITIS ULCERATIVE
     Dosage: PO
     Route: 048
  4. MESALAMINE [Concomitant]

REACTIONS (7)
  - B-CELL LYMPHOMA [None]
  - COLITIS ULCERATIVE [None]
  - CONDITION AGGRAVATED [None]
  - DEFAECATION URGENCY [None]
  - DIARRHOEA [None]
  - POUCHITIS [None]
  - WEIGHT DECREASED [None]
